FAERS Safety Report 6356512-7 (Version None)
Quarter: 2009Q3

REPORT INFORMATION
  Report Type: 
  Country: None (occurrence: None)
  Receive Date: 20090915
  Receipt Date: 20090908
  Transmission Date: 20100115
  Serious: Yes (Disabling)
  Sender: FDA-Public Use
  Company Number: B0592703A

PATIENT
  Sex: Male

DRUGS (5)
  1. SALBUTAMOL SULPHATE [Suspect]
     Indication: ASTHMA
     Route: 065
     Dates: start: 20030101, end: 20070501
  2. FLUTICASONE PROPIONATE + SALMETEROL XINAFOATE [Suspect]
     Indication: ASTHMA
     Route: 055
     Dates: start: 20070501
  3. THEOPHYLLINE [Suspect]
     Indication: ASTHMA
     Route: 065
     Dates: start: 19990101
  4. AIROMIR [Suspect]
     Indication: ASTHMA
     Dosage: .1MG AS REQUIRED
     Route: 055
     Dates: start: 20070501
  5. BUDESONIDE [Suspect]
     Indication: ASTHMA
     Route: 065
     Dates: start: 20030101, end: 20070501

REACTIONS (2)
  - BACK PAIN [None]
  - EPIDURAL LIPOMATOSIS [None]
